FAERS Safety Report 10355555 (Version 1)
Quarter: 2014Q3

REPORT INFORMATION
  Report Type: Spontaneous
  Country: FR (occurrence: FR)
  Receive Date: 20140731
  Receipt Date: 20140731
  Transmission Date: 20150326
  Serious: Yes (Hospitalization)
  Sender: FDA-Public Use
  Company Number: FR-PFIZER INC-2014207731

PATIENT
  Age: 44 Year
  Sex: Male

DRUGS (4)
  1. ARACYTINE [Suspect]
     Active Substance: CYTARABINE
     Indication: ACUTE MYELOID LEUKAEMIA
     Dosage: 370 MG, CYCLIC, PER ADMINISTRATION
     Route: 041
     Dates: start: 20130824
  2. ARACYTINE [Suspect]
     Active Substance: CYTARABINE
     Dosage: 190 MG, CYCLIC, PER ADMINISTRATION
     Route: 041
     Dates: start: 20130924
  3. ZAVEDOS [Suspect]
     Active Substance: IDARUBICIN
     Indication: ACUTE MYELOID LEUKAEMIA
     Dosage: 1 DF, CYCLIC
     Route: 048
     Dates: start: 20130824
  4. CERUBIDIN [Suspect]
     Active Substance: DAUNORUBICIN
     Indication: ACUTE MYELOID LEUKAEMIA
     Dosage: 110 MG, CYCLIC, PER ADMINISTRATION
     Route: 041
     Dates: start: 20130824

REACTIONS (1)
  - Febrile bone marrow aplasia [Recovered/Resolved]

NARRATIVE: CASE EVENT DATE: 20130909
